FAERS Safety Report 6045981-8 (Version None)
Quarter: 2009Q1

REPORT INFORMATION
  Report Type: 
  Country: None (occurrence: None)
  Receive Date: 20090121
  Receipt Date: 20090108
  Transmission Date: 20090719
  Serious: No
  Sender: FDA-Public Use
  Company Number: AT-ELI_LILLY_AND_COMPANY-AT200901001169

PATIENT
  Age: 26 Year
  Sex: Female

DRUGS (5)
  1. ZYPREXA [Suspect]
     Indication: PSYCHOTIC DISORDER
     Dosage: 10 MG, DAILY (1/D)
     Route: 048
     Dates: end: 20090108
  2. ZYPREXA [Suspect]
     Dosage: 5 MG, DAILY (1/D)
     Route: 048
     Dates: start: 20090109
  3. ABILIFY [Concomitant]
     Dosage: 15 MG, DAILY (1/D)
     Route: 048
  4. ABILIFY [Concomitant]
     Dosage: 10 MG, DAILY (1/D)
     Route: 048
  5. ABILIFY [Concomitant]
     Dosage: 10 MG, DAILY (1/D)
     Route: 048

REACTIONS (1)
  - LEUKOPENIA [None]
